FAERS Safety Report 6597014-2 (Version None)
Quarter: 2010Q1

REPORT INFORMATION
  Report Type: 
  Country: None (occurrence: None)
  Receive Date: 20100223
  Receipt Date: 20100218
  Transmission Date: 20100710
  Serious: Yes (Other)
  Sender: FDA-Public Use
  Company Number: A0845194A

PATIENT
  Age: 76 Year
  Sex: Male

DRUGS (6)
  1. ADVAIR DISKUS 100/50 [Suspect]
     Indication: ASTHMA
     Dosage: 1PUFF TWICE PER DAY
     Route: 055
     Dates: start: 19920101
  2. DILTIAZEM HCL [Concomitant]
  3. BENICAR [Concomitant]
  4. DOXAZOSIN MESYLATE [Concomitant]
  5. ALLOPURINOL [Concomitant]
  6. PLAVIX [Concomitant]

REACTIONS (5)
  - BORDERLINE GLAUCOMA [None]
  - EYE SWELLING [None]
  - INTRAOCULAR PRESSURE INCREASED [None]
  - IRITIS [None]
  - VISION BLURRED [None]
